FAERS Safety Report 8565615-8 (Version None)
Quarter: 2012Q3

REPORT INFORMATION
  Report Type: 
  Country: None (occurrence: None)
  Receive Date: 20120803
  Receipt Date: 20120731
  Transmission Date: 20120928
  Serious: No
  Sender: FDA-Public Use
  Company Number: US-TEVA-351588USA

PATIENT
  Sex: Female
  Weight: 65.83 kg

DRUGS (3)
  1. AMITRIPTYLINE HCL [Concomitant]
     Indication: ANXIETY
  2. ABILIFY [Concomitant]
     Indication: ANXIETY
  3. PLAN B ONE-STEP [Suspect]
     Indication: POST COITAL CONTRACEPTION
     Dosage: 1.5 MILLIGRAM;
     Route: 048
     Dates: start: 20120730, end: 20120730

REACTIONS (1)
  - PELVIC PAIN [None]
